FAERS Safety Report 17205437 (Version 1)
Quarter: 2019Q4

REPORT INFORMATION
  Report Type: Spontaneous
  Country: US (occurrence: US)
  Receive Date: 20191227
  Receipt Date: 20191227
  Transmission Date: 20200122
  Serious: No
  Sender: FDA-Public Use
  Company Number: US-ELI_LILLY_AND_COMPANY-US201912010982

PATIENT
  Age: 71 Year
  Sex: Male

DRUGS (3)
  1. BASAGLAR [Suspect]
     Active Substance: INSULIN GLARGINE
     Dosage: 30 U, UNKNOWN
     Route: 058
     Dates: start: 20191219
  2. BASAGLAR [Suspect]
     Active Substance: INSULIN GLARGINE
     Dosage: 30 U, EACH MORNING
     Route: 058
     Dates: start: 2013
  3. BASAGLAR [Suspect]
     Active Substance: INSULIN GLARGINE
     Indication: TYPE 1 DIABETES MELLITUS
     Dosage: 26 U, EACH MORNING
     Route: 058
     Dates: start: 2013

REACTIONS (2)
  - Blood glucose increased [Unknown]
  - Drug ineffective [Unknown]
